FAERS Safety Report 10176112 (Version 1)
Quarter: 2014Q2

REPORT INFORMATION
  Report Type: Spontaneous
  Country: US (occurrence: None)
  Receive Date: 20140514
  Receipt Date: 20140514
  Transmission Date: 20141212
  Serious: Yes (Other)
  Sender: FDA-Public Use
  Company Number: 2014SA058350

PATIENT
  Age: 48 Year
  Sex: Female

DRUGS (1)
  1. ICY HOT MEDICATED [Suspect]
     Indication: ARTHRITIS

REACTIONS (4)
  - Burns second degree [None]
  - Burn infection [None]
  - Application site burn [None]
  - Wrong technique in drug usage process [None]
